FAERS Safety Report 11316679 (Version 1)
Quarter: 2015Q3

REPORT INFORMATION
  Report Type: Spontaneous
  Country: JP (occurrence: None)
  Receive Date: 20150724
  Receipt Date: 20150724
  Transmission Date: 20151125
  Serious: Yes (Hospitalization)
  Sender: FDA-Public Use
  Company Number: AE-15-008

PATIENT
  Age: 19 Year
  Sex: Male

DRUGS (2)
  1. DICLOFENAC [Suspect]
     Active Substance: DICLOFENAC
     Indication: URINARY TRACT INFECTION
     Dosage: 3 WEEKS PRIOR TO INITIAL HOSPITAL ADMISSION TO 2 WEEKS PRIOR TO INITIAL HOSPITAL ADMISSION
     Route: 048
  2. DICLOFENAC [Suspect]
     Active Substance: DICLOFENAC
     Indication: PAIN
     Dosage: 3 WEEKS PRIOR TO INITIAL HOSPITAL ADMISSION TO 2 WEEKS PRIOR TO INITIAL HOSPITAL ADMISSION
     Route: 048

REACTIONS (3)
  - Renal failure [None]
  - Tubulointerstitial nephritis [None]
  - Decreased appetite [None]

NARRATIVE: CASE EVENT DATE: 200610
